FAERS Safety Report 5478354-7 (Version None)
Quarter: 2007Q4

REPORT INFORMATION
  Report Type: 
  Country: None (occurrence: None)
  Receive Date: 20071005
  Receipt Date: 20071002
  Transmission Date: 20080405
  Serious: Yes (Other)
  Sender: FDA-Public Use
  Company Number: A0685667A

PATIENT
  Age: 77 Year
  Sex: Male

DRUGS (9)
  1. ADVAIR DISKUS 100/50 [Suspect]
     Indication: ASTHMA
     Dosage: 1PUFF TWICE PER DAY
     Route: 055
     Dates: start: 20030101
  2. ALBUTEROL [Suspect]
     Indication: ASTHMA
     Route: 055
     Dates: start: 19930101, end: 20010101
  3. SEREVENT [Suspect]
     Indication: ASTHMA
     Dosage: 2PUFF TWICE PER DAY
     Route: 055
     Dates: start: 20010101, end: 20030101
  4. VITAMINS [Concomitant]
  5. HERBAL SUPPLEMENTS [Concomitant]
  6. TOPROL-XL [Concomitant]
  7. CHLORPHENIRAMINE MALEATE [Concomitant]
  8. PHENYLEPHRINE HCL [Concomitant]
  9. ALOE [Concomitant]

REACTIONS (4)
  - AGEUSIA [None]
  - ANOSMIA [None]
  - ASTHMA [None]
  - DRUG INEFFECTIVE [None]
